FAERS Safety Report 5592822-9 (Version None)
Quarter: 2008Q1

REPORT INFORMATION
  Report Type: 
  Country: None (occurrence: None)
  Receive Date: 20080114
  Receipt Date: 20080107
  Transmission Date: 20080703
  Serious: Yes (Hospitalization)
  Sender: FDA-Public Use
  Company Number: 163-21880-08010318

PATIENT
  Age: 62 Year
  Sex: Male
  Weight: 106.1 kg

DRUGS (5)
  1. REVLIMID [Suspect]
     Indication: CHRONIC LYMPHOCYTIC LEUKAEMIA
     Dosage: 20 MG, 1 IN 1 D, ORAL, 20 MG, 1 IN 1 D, ORAL
     Route: 048
     Dates: start: 20071217, end: 20071230
  2. REVLIMID [Suspect]
     Indication: CHRONIC LYMPHOCYTIC LEUKAEMIA
     Dosage: 20 MG, 1 IN 1 D, ORAL, 20 MG, 1 IN 1 D, ORAL
     Route: 048
     Dates: start: 20071231
  3. RITUXAN [Suspect]
     Indication: CHRONIC LYMPHOCYTIC LEUKAEMIA
     Dosage: 860 MG IN 250 ML, WEEKLY, INTRAVENOUS, INTRAVENOUS, 860MG IN 250 ML, WEEKLY, INTRAVENOUS
     Route: 042
     Dates: start: 20071217, end: 20071217
  4. RITUXAN [Suspect]
     Indication: CHRONIC LYMPHOCYTIC LEUKAEMIA
     Dosage: 860 MG IN 250 ML, WEEKLY, INTRAVENOUS, INTRAVENOUS, 860MG IN 250 ML, WEEKLY, INTRAVENOUS
     Route: 042
     Dates: start: 20071224, end: 20071224
  5. RITUXAN [Suspect]
     Indication: CHRONIC LYMPHOCYTIC LEUKAEMIA
     Dosage: 860 MG IN 250 ML, WEEKLY, INTRAVENOUS, INTRAVENOUS, 860MG IN 250 ML, WEEKLY, INTRAVENOUS
     Route: 042
     Dates: start: 20071231, end: 20071231

REACTIONS (8)
  - CHEST PAIN [None]
  - CHILLS [None]
  - INFLUENZA LIKE ILLNESS [None]
  - INFUSION RELATED REACTION [None]
  - PLATELET COUNT DECREASED [None]
  - TINNITUS [None]
  - TROPONIN INCREASED [None]
  - WHITE BLOOD CELL COUNT INCREASED [None]
